FAERS Safety Report 4333359-4 (Version None)
Quarter: 2004Q2

REPORT INFORMATION
  Report Type: 
  Country: None (occurrence: None)
  Receive Date: 20040401
  Receipt Date: 20040322
  Transmission Date: 20050107
  Serious: Yes (Death)
  Sender: FDA-Public Use
  Company Number: US-JNJFOC-20040204110

PATIENT
  Age: 47 Year
  Sex: Male
  Weight: 91.6266 kg

DRUGS (2)
  1. DURAGESIC [Suspect]
     Dosage: 25 UG/HR, TRANSDERMAL
     Route: 062
     Dates: start: 20030809
  2. MORPHINE [Suspect]

REACTIONS (7)
  - ACCIDENTAL OVERDOSE [None]
  - CORONARY ARTERY ATHEROSCLEROSIS [None]
  - DRUG SCREEN POSITIVE [None]
  - DRUG TOXICITY [None]
  - HEPATIC CIRRHOSIS [None]
  - PULMONARY OEDEMA [None]
  - SPLENOMEGALY [None]
